FAERS Safety Report 5895595-5 (Version None)
Quarter: 2008Q3

REPORT INFORMATION
  Report Type: 
  Country: None (occurrence: None)
  Receive Date: 20080924
  Receipt Date: 20080519
  Transmission Date: 20090109
  Serious: Yes (Other)
  Sender: FDA-Public Use
  Company Number: US-ASTRAZENECA-2006UW08444

PATIENT
  Age: 54 Year
  Sex: Female
  Weight: 54.4 kg

DRUGS (4)
  1. SEROQUEL [Suspect]
     Indication: SCHIZOPHRENIA
     Dosage: 200 MG -300 MG
     Route: 048
     Dates: start: 19980615
  2. SEROQUEL [Suspect]
     Indication: BIPOLAR DISORDER
     Dosage: 200 MG -300 MG
     Route: 048
     Dates: start: 19980615
  3. SEROQUEL [Suspect]
     Indication: INSOMNIA
     Dosage: 200 MG -300 MG
     Route: 048
     Dates: start: 19980615
  4. PROZAC [Concomitant]

REACTIONS (2)
  - DIABETES MELLITUS [None]
  - DIABETIC COMA [None]
